FAERS Safety Report 7493939-4 (Version None)
Quarter: 2011Q2

REPORT INFORMATION
  Report Type: 
  Country: None (occurrence: None)
  Receive Date: 20110520
  Receipt Date: 20110516
  Transmission Date: 20111010
  Serious: Yes (Death)
  Sender: FDA-Public Use
  Company Number: US-PFIZER INC-2011105490

PATIENT
  Age: 28 Year
  Sex: Male

DRUGS (5)
  1. FENTANYL [Suspect]
  2. METHADONE HCL [Suspect]
  3. ALPRAZOLAM [Suspect]
  4. DEXTROMETHORPHAN HYDROBROMIDE [Suspect]
  5. HEROIN [Suspect]

REACTIONS (1)
  - TOXICITY TO VARIOUS AGENTS [None]
